FAERS Safety Report 22284069 (Version 1)
Quarter: 2023Q2

REPORT INFORMATION
  Report Type: Report from Study
  Country: US (occurrence: US)
  Receive Date: 20230504
  Receipt Date: 20230504
  Transmission Date: 20230721
  Serious: Yes (Other)
  Sender: FDA-Public Use
  Company Number: US-002147023-NVSC2023US098375

PATIENT
  Sex: Female

DRUGS (8)
  1. BETAMETHASONE [Suspect]
     Active Substance: BETAMETHASONE
     Indication: Psoriasis
     Dosage: 0.05 %
     Route: 061
  2. MELOXICAM [Suspect]
     Active Substance: MELOXICAM
     Indication: Psoriasis
     Dosage: 15 MG
     Route: 048
  3. HYDROCHLOROTHIAZIDE [Suspect]
     Active Substance: HYDROCHLOROTHIAZIDE
     Indication: Psoriasis
     Dosage: 12.5 MG
     Route: 048
  4. HYDROCODONE [Suspect]
     Active Substance: HYDROCODONE
     Indication: Psoriasis
     Dosage: UNK (HYDROCODONE-IBUPROFEN 7.5MG-200MG)
     Route: 048
  5. ESOMEPRAZOLE [Suspect]
     Active Substance: ESOMEPRAZOLE
     Indication: Psoriasis
     Dosage: 40 MG (POWDER) (FOR RECONSTITUTION, DELAYED RELEASE)
     Route: 048
  6. TRAMADOL [Suspect]
     Active Substance: TRAMADOL
     Indication: Psoriasis
     Dosage: 50 MG
     Route: 048
  7. AMLODIPINE [Suspect]
     Active Substance: AMLODIPINE BESYLATE
     Indication: Psoriasis
     Dosage: 10 MG
     Route: 048
  8. FLUOXETINE [Suspect]
     Active Substance: FLUOXETINE HYDROCHLORIDE
     Indication: Psoriasis
     Dosage: 40 MG
     Route: 048

REACTIONS (7)
  - Psoriatic arthropathy [Unknown]
  - Haemorrhage [Unknown]
  - Contusion [Unknown]
  - General physical health deterioration [Unknown]
  - Pruritus [Unknown]
  - Psoriasis [Unknown]
  - Drug ineffective [Unknown]
